FAERS Safety Report 6667081-6 (Version None)
Quarter: 2010Q2

REPORT INFORMATION
  Report Type: 
  Country: None (occurrence: None)
  Receive Date: 20100402
  Receipt Date: 20100402
  Transmission Date: 20101027
  Serious: Yes (Life-Threatening, Hospitalization)
  Sender: FDA-Public Use
  Company Number: None

PATIENT
  Age: 78 Year
  Sex: Female
  Weight: 62.5964 kg

DRUGS (2)
  1. CLOPIDOGREL [Suspect]
     Indication: CORONARY ARTERY DISEASE
     Dosage: 75 MG DAILY PO
     Route: 048
     Dates: start: 20090630, end: 20100330
  2. ASPIRIN [Suspect]
     Indication: CORONARY ARTERY DISEASE
     Dosage: 325 MG DAILY PO
     Route: 048
     Dates: start: 20090630, end: 20100330

REACTIONS (6)
  - ANAEMIA [None]
  - BACK PAIN [None]
  - EXTRADURAL HAEMATOMA [None]
  - MUSCULAR WEAKNESS [None]
  - PARAPLEGIA [None]
  - SYNCOPE [None]
